FAERS Safety Report 14556591 (Version 1)
Quarter: 2018Q1

REPORT INFORMATION
  Report Type: Spontaneous
  Country: US (occurrence: US)
  Receive Date: 20180221
  Receipt Date: 20180221
  Transmission Date: 20180509
  Serious: No
  Sender: FDA-Public Use
  Company Number: US-PFIZER INC-2018065130

PATIENT
  Age: 18 Year
  Sex: Female
  Weight: 86 kg

DRUGS (3)
  1. ZOLOFT [Suspect]
     Active Substance: SERTRALINE HYDROCHLORIDE
     Dosage: 150 MG, DAILY
     Dates: start: 201611, end: 201802
  2. ZOLOFT [Suspect]
     Active Substance: SERTRALINE HYDROCHLORIDE
     Dosage: 100 MG, UNK
  3. ZOLOFT [Suspect]
     Active Substance: SERTRALINE HYDROCHLORIDE
     Indication: ANXIETY
     Dosage: 50 MG, UNK
     Dates: start: 20160115

REACTIONS (9)
  - Night sweats [Not Recovered/Not Resolved]
  - Drug ineffective [Unknown]
  - Exercise tolerance decreased [Unknown]
  - Dyspnoea [Not Recovered/Not Resolved]
  - Platelet count increased [Unknown]
  - Fatigue [Not Recovered/Not Resolved]
  - Iron deficiency anaemia [Unknown]
  - Asthenia [Unknown]
  - Condition aggravated [Unknown]

NARRATIVE: CASE EVENT DATE: 201610
